FAERS Safety Report 8873187 (Version 1)
Quarter: 2012Q4

REPORT INFORMATION
  Report Type: Report from Study
  Country: US (occurrence: US)
  Receive Date: 20121030
  Receipt Date: 20121030
  Transmission Date: 20130627
  Serious: No
  Sender: FDA-Public Use
  Company Number: US-ABBOTT-12P-163-0922633-00

PATIENT
  Sex: Female

DRUGS (3)
  1. LUPRON DEPOT 3.75 MG [Suspect]
     Indication: MENSTRUAL DISORDER
     Dosage: 18 Oct 2011 - Fill date
     Route: 050
     Dates: start: 201110
  2. VITAMIN B12 [Concomitant]
     Indication: PRODUCT USED FOR UNKNOWN INDICATION
     Route: 048
  3. CITRANATAL RX [Concomitant]
     Indication: PRODUCT USED FOR UNKNOWN INDICATION

REACTIONS (2)
  - Weight increased [Not Recovered/Not Resolved]
  - Hot flush [Not Recovered/Not Resolved]
